FAERS Safety Report 6125471-4 (Version None)
Quarter: 2009Q1

REPORT INFORMATION
  Report Type: 
  Country: None (occurrence: None)
  Receive Date: 20090320
  Receipt Date: 20090316
  Transmission Date: 20090719
  Serious: Yes (Death, Life-Threatening, Hospitalization)
  Sender: FDA-Public Use
  Company Number: PHEH2008US08051

PATIENT
  Sex: Male

DRUGS (4)
  1. DESFERAL [Suspect]
     Indication: HAEMOCHROMATOSIS
     Dosage: 2 G, QD
     Route: 042
     Dates: end: 20050401
  2. DESFERAL [Suspect]
     Indication: SICKLE CELL ANAEMIA
     Dosage: 2 GRAMS IV QD
     Dates: end: 20080301
  3. EXJADE [Suspect]
     Indication: HAEMOCHROMATOSIS
     Dosage: 1500 MG, QD
     Route: 048
     Dates: start: 20050401
  4. EXJADE [Suspect]
     Indication: SICKLE CELL ANAEMIA
     Dosage: 1 GRAM QD
     Route: 048
     Dates: start: 20080301

REACTIONS (10)
  - BILE DUCT STENOSIS [None]
  - CARDIAC FAILURE [None]
  - COAGULOPATHY [None]
  - HAEMOCHROMATOSIS [None]
  - HEPATIC CIRRHOSIS [None]
  - HEPATIC ENCEPHALOPATHY [None]
  - HEPATIC FAILURE [None]
  - HYPERBILIRUBINAEMIA [None]
  - INTERNATIONAL NORMALISED RATIO INCREASED [None]
  - JAUNDICE [None]
